FAERS Safety Report 4271660-3 (Version None)
Quarter: 2004Q1

REPORT INFORMATION
  Report Type: 
  Country: None (occurrence: None)
  Receive Date: 20040113
  Receipt Date: 20040105
  Transmission Date: 20041129
  Serious: Yes (Hospitalization)
  Sender: FDA-Public Use
  Company Number: 2004193274FR

PATIENT
  Age: 37 Year
  Sex: Female

DRUGS (3)
  1. XANAX [Suspect]
     Dosage: ORAL
     Route: 048
  2. RODOGYL (SPIRAMYCIN) [Suspect]
     Dosage: ORAL
     Route: 048
     Dates: start: 20031121, end: 20031127
  3. LEVOTHYROXINE SODIUM [Concomitant]

REACTIONS (5)
  - DYSPNOEA [None]
  - MUCOUS MEMBRANE DISORDER [None]
  - OEDEMA [None]
  - OEDEMA PERIPHERAL [None]
  - URTICARIA [None]
